FAERS Safety Report 8904280 (Version 1)
Quarter: 2012Q4

REPORT INFORMATION
  Report Type: 
  Country: IT (occurrence: IT)
  Receive Date: 20121112
  Receipt Date: 20121112
  Transmission Date: 20130627
  Serious: Yes (Other)
  Sender: FDA-Public Use
  Company Number: IT-MERCK-1210USA011412

PATIENT

DRUGS (2)
  1. PEGINTERFERON ALFA-2B [Suspect]
     Indication: HEPATITIS C
     Dosage: 1.5 Microgram per kilogram, qw
  2. RIBAVIRIN [Suspect]
     Indication: HEPATITIS C
     Dosage: 800-1400 mg,QD

REACTIONS (1)
  - Infection [Unknown]
